FAERS Safety Report 6407096-6 (Version None)
Quarter: 2009Q4

REPORT INFORMATION
  Report Type: 
  Country: None (occurrence: None)
  Receive Date: 20091020
  Receipt Date: 20091009
  Transmission Date: 20100525
  Serious: Yes (Life-Threatening, Other)
  Sender: FDA-Public Use
  Company Number: AT-NOVOPROD-268771

PATIENT
  Age: 77 Year
  Sex: Female
  Weight: 64 kg

DRUGS (11)
  1. NOVOSEVEN [Suspect]
     Indication: HAEMORRHAGE
     Dosage: 14.4 MG, UNK
     Route: 042
     Dates: start: 20071012, end: 20071012
  2. NOVOSEVEN [Suspect]
     Indication: ANAEMIA
     Dosage: 6.6 MG, UNK
     Route: 042
     Dates: start: 20071013, end: 20071013
  3. NOVOSEVEN [Suspect]
     Indication: FACTOR VII DEFICIENCY
  4. SODIUM CHLORIDE [Concomitant]
     Dosage: 1000 ML, UNK
     Route: 042
  5. DIBONDRIN [Concomitant]
     Dosage: 1 VIAL
  6. SOLUDACORTIN [Concomitant]
     Dosage: 250 MG, UNK
     Dates: start: 20071012
  7. PPI                                /00661201/ [Concomitant]
  8. APREDNISLON [Concomitant]
  9. ENDOXAN                            /00021101/ [Concomitant]
     Dosage: 200 MG, QD
     Route: 048
     Dates: start: 20071012
  10. FACTOR VII [Concomitant]
     Indication: HAEMORRHAGE
  11. PANTOLOC                           /01263201/ [Concomitant]
     Dosage: 40 MG, BID
     Route: 042
     Dates: start: 20071012, end: 20071019

REACTIONS (2)
  - ANAPHYLACTIC REACTION [None]
  - DISSEMINATED INTRAVASCULAR COAGULATION [None]
